FAERS Safety Report 7507002-7 (Version None)
Quarter: 2011Q2

REPORT INFORMATION
  Report Type: 
  Country: None (occurrence: None)
  Receive Date: 20110526
  Receipt Date: 20110512
  Transmission Date: 20111010
  Serious: No
  Sender: FDA-Public Use
  Company Number: US-B.I. PHARMACEUTICALS,INC./RIDGEFIELD-2011-BP-12950BP

PATIENT
  Age: 87 Year
  Sex: Female

DRUGS (5)
  1. PRADAXA [Suspect]
     Dosage: 300 MG
     Route: 048
     Dates: start: 20110125, end: 20110131
  2. PLAQUINOL [Concomitant]
     Indication: CUTANEOUS LUPUS ERYTHEMATOSUS
     Route: 048
  3. PRADAXA [Suspect]
     Indication: ATRIAL FIBRILLATION
     Dosage: 300 MG
     Route: 048
     Dates: start: 20110222
  4. FOSAMAX [Concomitant]
     Indication: OSTEOPOROSIS
     Route: 048
  5. FOSAMAX [Concomitant]
     Indication: OSTEOPENIA

REACTIONS (5)
  - CONTUSION [None]
  - WOUND [None]
  - EPISTAXIS [None]
  - FALL [None]
  - SKIN DISORDER [None]
